FAERS Safety Report 14458867 (Version 1)
Quarter: 2018Q1

REPORT INFORMATION
  Report Type: Spontaneous
  Country: US (occurrence: US)
  Receive Date: 20180129
  Receipt Date: 20180129
  Transmission Date: 20180509
  Serious: Yes (Hospitalization)
  Sender: FDA-Public Use
  Company Number: None

PATIENT
  Age: 39 Year
  Sex: Female
  Weight: 171.4 kg

DRUGS (8)
  1. TRIMETHOPRIM (TRIMPEX) [Concomitant]
  2. HUMULIN R [Concomitant]
     Active Substance: INSULIN HUMAN
  3. HYDROCODONE-ACETAMINOPHEN (NORCO) [Concomitant]
  4. ZOSYN [Suspect]
     Active Substance: PIPERACILLIN SODIUM\TAZOBACTAM SODIUM
  5. OMEPRAZOLE. [Concomitant]
     Active Substance: OMEPRAZOLE
  6. PHENAZOPYRIDINE (PYRIDIUM) [Concomitant]
  7. SYNTHROID [Concomitant]
     Active Substance: LEVOTHYROXINE SODIUM
  8. SIMVASTATIN. [Concomitant]
     Active Substance: SIMVASTATIN

REACTIONS (1)
  - Escherichia sepsis [None]

NARRATIVE: CASE EVENT DATE: 20170814
